FAERS Safety Report 10548550 (Version 1)
Quarter: 2014Q4

REPORT INFORMATION
  Report Type: Spontaneous
  Country: US (occurrence: None)
  Receive Date: 20141015
  Receipt Date: 20141015
  Transmission Date: 20150529
  Serious: Yes (Hospitalization)
  Sender: FDA-Public Use
  Company Number: 2014US003680

PATIENT
  Age: 48 Year
  Sex: Female

DRUGS (19)
  1. ICLUSIG [Suspect]
     Active Substance: PONATINIB
     Indication: CHRONIC MYELOID LEUKAEMIA
     Route: 048
  2. ASPIRIN (ACETYLSALICYLIC ACID) [Concomitant]
     Active Substance: ASPIRIN
  3. SENOKOT (SENNOSIDE A+B) [Concomitant]
  4. ACYCLOVIR (ACICLOVIR SODIUM) [Concomitant]
  5. PRAMOXINE/HYDROCORTISONE (HYDROCORTISONE ACETATE, PRAMOCAINE HYDROCHLORIDE) [Concomitant]
  6. ZANTAC [Concomitant]
     Active Substance: RANITIDINE HYDROCHLORIDE
  7. OXYCODONE (OXYCODONE HYDROCHLORIDE) (OXYCODONE) [Concomitant]
     Active Substance: OXYCODONE
  8. TUMS [Concomitant]
     Active Substance: CALCIUM CARBONATE
  9. BACTRIM DS (SULFAMETHOXAZOLE, TRIMETHOPRIM) [Concomitant]
  10. BUDESONIDE. [Concomitant]
     Active Substance: BUDESONIDE
  11. LISINOPRIL. [Concomitant]
     Active Substance: LISINOPRIL
  12. METOPROLOL (METOPROLOL TARTRATE) [Concomitant]
     Active Substance: METOPROLOL TARTRATE
  13. NORVASC [Concomitant]
     Active Substance: AMLODIPINE BESYLATE
  14. ONDANSETRON. [Concomitant]
     Active Substance: ONDANSETRON
  15. RAPAMUNE [Concomitant]
     Active Substance: SIROLIMUS
  16. TRIAMCINOLONE ACETONIDE. [Concomitant]
     Active Substance: TRIAMCINOLONE ACETONIDE
  17. PROCHLORPERAZINE (PROCHLORPERAZINE MALEATE) [Concomitant]
  18. TRICOR [Concomitant]
     Active Substance: FENOFIBRATE
  19. URSODIOL. [Concomitant]
     Active Substance: URSODIOL

REACTIONS (1)
  - Hospitalisation [None]

NARRATIVE: CASE EVENT DATE: 2014
